FAERS Safety Report 4849839-9 (Version None)
Quarter: 2005Q4

REPORT INFORMATION
  Report Type: 
  Country: None (occurrence: None)
  Receive Date: 20051114
  Receipt Date: 20050414
  Transmission Date: 20060501
  Serious: Yes (Other)
  Sender: FDA-Public Use
  Company Number: 04-000129

PATIENT
  Age: 18 Month
  Sex: Male
  Weight: 10.4 kg

DRUGS (3)
  1. DURICEF [Suspect]
     Indication: LYMPHADENITIS
     Dosage: 3 ML, BID, ORAL
     Route: 048
     Dates: start: 20040122, end: 20040126
  2. AUGMENTIN (CLAVULANATE POTASSIUM, AMOXICILLIN TRIHYDRATE) [Concomitant]
  3. OMNICEF [Concomitant]

REACTIONS (2)
  - CLOSTRIDIAL INFECTION [None]
  - DIARRHOEA HAEMORRHAGIC [None]
